FAERS Safety Report 12526452 (Version 1)
Quarter: 2016Q3

REPORT INFORMATION
  Report Type: Spontaneous
  Country: US (occurrence: US)
  Receive Date: 20160705
  Receipt Date: 20160705
  Transmission Date: 20161109
  Serious: No
  Sender: FDA-Public Use
  Company Number: US-TEVA-641406USA

PATIENT
  Age: 4 Year
  Sex: Female

DRUGS (1)
  1. FINASTERIDE. [Suspect]
     Active Substance: FINASTERIDE
     Dates: start: 20160301, end: 20160302

REACTIONS (3)
  - Muscle spasms [Unknown]
  - Drug dispensing error [Unknown]
  - Dyspnoea [Unknown]
